FAERS Safety Report 9529849 (Version 1)
Quarter: 2013Q2

REPORT INFORMATION
  Report Type: Spontaneous
  Country: US (occurrence: None)
  Receive Date: 20130402
  Receipt Date: 20130402
  Transmission Date: 20140414
  Serious: Yes (Hospitalization, Other)
  Sender: FDA-Public Use
  Company Number: RB-48589-2013

PATIENT
  Sex: Female

DRUGS (2)
  1. SUBOXONE [Suspect]
     Indication: DRUG DEPENDENCE
     Dosage: (16 MG SUBOXONE FILM TRANSPLACENTAL)?
     Route: 064
     Dates: start: 2012, end: 2012
  2. LEXAPRO (NOT SPECIFIED) [Suspect]
     Indication: ANXIETY
     Dosage: (10 MG TRANSPLACENTAL)
     Route: 064
     Dates: start: 2012, end: 20121115

REACTIONS (2)
  - Foetal exposure during pregnancy [None]
  - Drug withdrawal syndrome neonatal [None]
